FAERS Safety Report 22099476 (Version 1)
Quarter: 2023Q1

REPORT INFORMATION
  Report Type: Spontaneous
  Country: US (occurrence: US)
  Receive Date: 20230315
  Receipt Date: 20230315
  Transmission Date: 20230418
  Serious: Yes (Hospitalization)
  Sender: FDA-Public Use
  Company Number: US-PFIZER INC-2003185437US

PATIENT
  Age: 74 Year
  Sex: Male

DRUGS (7)
  1. CAMPTOSAR [Interacting]
     Active Substance: IRINOTECAN HYDROCHLORIDE
     Indication: Gastrointestinal carcinoma
     Dosage: UNK (7TH APR) 3 DAYS BEFORE ADMISSION
  2. CITALOPRAM [Interacting]
     Active Substance: CITALOPRAM HYDROBROMIDE
     Indication: Depression
     Dosage: 20 MG (12TH APR) FOR ONE DOSE ONLY
  3. ASPIRIN [Concomitant]
     Active Substance: ASPIRIN
  4. XANAX [Concomitant]
     Active Substance: ALPRAZOLAM
  5. VASOTEC [Concomitant]
     Active Substance: ENALAPRIL MALEATE
  6. NITROSTAT [Concomitant]
     Active Substance: NITROGLYCERIN
  7. ZOCOR [Concomitant]
     Active Substance: SIMVASTATIN

REACTIONS (2)
  - Drug interaction [Unknown]
  - Rhabdomyolysis [Recovering/Resolving]
